FAERS Safety Report 13343797 (Version 2)
Quarter: 2018Q1

REPORT INFORMATION
  Report Type: Spontaneous
  Country: FR (occurrence: FR)
  Receive Date: 20170316
  Receipt Date: 20180122
  Transmission Date: 20180508
  Serious: Yes (Other)
  Sender: FDA-Public Use
  Company Number: FR-ABBVIE-17P-056-1903222-00

PATIENT
  Age: 49 Year
  Sex: Female
  Weight: 62 kg

DRUGS (4)
  1. HUMIRA [Suspect]
     Active Substance: ADALIMUMAB
     Indication: ANKYLOSING SPONDYLITIS
     Route: 058
  2. ENBREL [Suspect]
     Active Substance: ETANERCEPT
     Indication: ANKYLOSING SPONDYLITIS
     Route: 065
     Dates: start: 2012, end: 2016
  3. PROGESTIN [Suspect]
     Active Substance: PROGESTERONE
     Indication: GENITAL HAEMORRHAGE
     Route: 065
     Dates: start: 2015
  4. MINIDRIL [Concomitant]
     Active Substance: ETHINYL ESTRADIOL\LEVONORGESTREL
     Indication: GENITAL HAEMORRHAGE
     Dates: start: 2017

REACTIONS (4)
  - Genital haemorrhage [Recovered/Resolved with Sequelae]
  - Iron deficiency anaemia [Unknown]
  - Drug resistance [Unknown]
  - Adenomyosis [Recovered/Resolved with Sequelae]

NARRATIVE: CASE EVENT DATE: 201611
